FAERS Safety Report 4805858-X (Version None)
Quarter: 2005Q4

REPORT INFORMATION
  Report Type: 
  Country: None (occurrence: None)
  Receive Date: 20051014
  Receipt Date: 20050929
  Transmission Date: 20060501
  Serious: Yes (Other)
  Sender: FDA-Public Use
  Company Number: 603844

PATIENT
  Sex: Male

DRUGS (2)
  1. HEMOFIL (FACTOR VIII (ANTIHAEMOPHILIC FACTOR)) [Suspect]
     Indication: HAEMOPHILIA
  2. PROPLEX T (FACTOR IX COMPLEX HUMAN) [Suspect]
     Indication: HAEMOPHILIA

REACTIONS (5)
  - HEPATITIS B [None]
  - HEPATITIS C VIRUS [None]
  - HIV INFECTION [None]
  - PHARMACEUTICAL PRODUCT COMPLAINT [None]
  - POOR QUALITY DRUG ADMINISTERED [None]
